FAERS Safety Report 4358591-5 (Version None)
Quarter: 2004Q2

REPORT INFORMATION
  Report Type: 
  Country: None (occurrence: None)
  Receive Date: 20040514
  Receipt Date: 20040429
  Transmission Date: 20050107
  Serious: Yes (Death, Hospitalization)
  Sender: FDA-Public Use
  Company Number: 2004-BP-02880MX

PATIENT
  Age: 80 Year
  Sex: Female

DRUGS (2)
  1. SPIRIVA [Suspect]
     Indication: CHRONIC OBSTRUCTIVE AIRWAYS DISEASE
     Dosage: 0.18 MCG (0.18 MCG, 1 KAI O.D.)  IH : ORAL
     Route: 055
     Dates: start: 20040301, end: 20040301
  2. SPIRIVA [Suspect]
     Indication: CHRONIC OBSTRUCTIVE AIRWAYS DISEASE
     Dosage: 0.18 MCG (0.18 MCG, 1 KAI O.D.)  IH : ORAL
     Route: 055
     Dates: start: 20040101, end: 20040301

REACTIONS (4)
  - CYANOSIS [None]
  - LOWER RESPIRATORY TRACT INFECTION [None]
  - PULMONARY EMBOLISM [None]
  - RESPIRATORY ARREST [None]
